FAERS Safety Report 7688246-0 (Version None)
Quarter: 2011Q3

REPORT INFORMATION
  Report Type: 
  Country: None (occurrence: None)
  Receive Date: 20110817
  Receipt Date: 20110715
  Transmission Date: 20111222
  Serious: No
  Sender: FDA-Public Use
  Company Number: US-GLAXOSMITHKLINE-A0936967A

PATIENT
  Age: 47 Year
  Sex: Male

DRUGS (10)
  1. GABAPENTIN [Concomitant]
  2. IRON SUPPLEMENT [Concomitant]
  3. ZANTAC [Concomitant]
  4. CARVEDILOL [Concomitant]
  5. VOTRIENT [Suspect]
     Indication: RENAL CELL CARCINOMA
     Dosage: 4TAB PER DAY
     Route: 048
     Dates: start: 20110615
  6. SITAGLIPTIN [Concomitant]
  7. SPIRONOLACTONE [Concomitant]
  8. ASPIRIN [Concomitant]
  9. RAMIPRIL [Concomitant]
  10. UNKNOWN DRUG [Concomitant]

REACTIONS (1)
  - HEADACHE [None]
